FAERS Safety Report 7407175-0 (Version None)
Quarter: 2011Q2

REPORT INFORMATION
  Report Type: 
  Country: None (occurrence: None)
  Receive Date: 20110411
  Receipt Date: 20110407
  Transmission Date: 20111010
  Serious: Yes (Hospitalization)
  Sender: FDA-Public Use
  Company Number: US-B.I. PHARMACEUTICALS,INC./RIDGEFIELD-2011-BP-10287BP

PATIENT
  Sex: Male

DRUGS (14)
  1. METOPROLOL TARTRATE [Concomitant]
     Indication: CARDIAC DISORDER
     Route: 048
  2. VALIUM [Concomitant]
     Indication: RESTLESS LEGS SYNDROME
  3. CYMBALTA [Concomitant]
     Indication: RESTLESS LEGS SYNDROME
     Route: 048
  4. ALLOPURINOL [Concomitant]
     Indication: PROPHYLAXIS
  5. JALYN [Concomitant]
     Indication: URINE FLOW DECREASED
  6. PROMACTA [Concomitant]
     Indication: IDIOPATHIC THROMBOCYTOPENIC PURPURA
     Route: 048
     Dates: end: 20110329
  7. NEXIUM [Concomitant]
     Indication: ULCER
  8. ZOCOR [Concomitant]
     Indication: BLOOD CHOLESTEROL INCREASED
     Route: 048
  9. PROMACTA [Concomitant]
     Route: 048
     Dates: start: 20110331
  10. PRADAXA [Suspect]
     Indication: ANTICOAGULANT THERAPY
     Dosage: 300 MG
     Route: 048
     Dates: start: 20110125, end: 20110329
  11. PRADAXA [Suspect]
     Dosage: 300 MG
     Route: 048
     Dates: start: 20110331
  12. NEXIUM [Concomitant]
     Indication: GASTROOESOPHAGEAL REFLUX DISEASE
     Route: 048
  13. VITAMINS [Concomitant]
     Indication: PROPHYLAXIS
  14. VALIUM [Concomitant]
     Indication: SLEEP DISORDER
     Route: 048

REACTIONS (1)
  - PLATELET COUNT DECREASED [None]
